FAERS Safety Report 9102580 (Version 4)
Quarter: 2014Q3

REPORT INFORMATION
  Report Type: Spontaneous
  Country: US (occurrence: US)
  Receive Date: 20130219
  Receipt Date: 20140711
  Transmission Date: 20150326
  Serious: Yes (Hospitalization, Other)
  Sender: FDA-Public Use
  Company Number: US-009507513-1302USA006739

PATIENT
  Sex: Female
  Weight: 73.16 kg

DRUGS (1)
  1. NUVARING [Suspect]
     Active Substance: ETHINYL ESTRADIOL\ETONOGESTREL
     Indication: CONTRACEPTION
     Dosage: 1 DF, 3 WKS IN, 1 WK OUT
     Route: 067
     Dates: start: 20070115, end: 20120606

REACTIONS (6)
  - Coagulopathy [Unknown]
  - Amenorrhoea [Unknown]
  - Atelectasis [Unknown]
  - Pulmonary infarction [Unknown]
  - Pulmonary embolism [Unknown]
  - Abdominoplasty [Unknown]

NARRATIVE: CASE EVENT DATE: 20090216
